FAERS Safety Report 6946922-9 (Version None)
Quarter: 2010Q3

REPORT INFORMATION
  Report Type: 
  Country: None (occurrence: None)
  Receive Date: 20100827
  Receipt Date: 20090929
  Transmission Date: 20110219
  Serious: No
  Sender: FDA-Public Use
  Company Number: US-ABBOTT-09P-163-0592816-00

PATIENT
  Sex: Male

DRUGS (9)
  1. NIASPAN [Suspect]
     Indication: BLOOD CHOLESTEROL INCREASED
     Dates: start: 20090301, end: 20090501
  2. NIASPAN [Suspect]
     Dates: start: 20090501, end: 20090601
  3. NIASPAN [Suspect]
     Dates: start: 20090601, end: 20090808
  4. NIASPAN [Suspect]
     Dates: start: 20090808, end: 20090813
  5. NIASPAN [Suspect]
     Dates: start: 20090813
  6. LOPRESSOR [Suspect]
     Indication: HYPERTENSION
     Dosage: UNKNOWN
     Dates: start: 20081101
  7. MAXZIDE [Concomitant]
     Indication: CARDIAC DISORDER
     Dosage: UNKNOWN
     Dates: start: 20081101
  8. MAXZIDE [Concomitant]
     Indication: SURGERY
  9. LEVOTHYROXINE [Concomitant]
     Indication: HYPOTHYROIDISM
     Dates: start: 20040101

REACTIONS (3)
  - PRURITUS [None]
  - RASH [None]
  - URTICARIA [None]
